FAERS Safety Report 11086862 (Version 2)
Quarter: 2015Q2

REPORT INFORMATION
  Report Type: Spontaneous
  Country: IT (occurrence: IT)
  Receive Date: 20150504
  Receipt Date: 20150514
  Transmission Date: 20150821
  Serious: Yes (Hospitalization)
  Sender: FDA-Public Use
  Company Number: IT-SUN PHARMACEUTICAL INDUSTRIES LTD-2015RR-96571

PATIENT
  Age: 9 Year
  Sex: Male

DRUGS (7)
  1. IBUPROFEN. [Interacting]
     Active Substance: IBUPROFEN
     Indication: INFLUENZA
     Dosage: UNK
     Route: 065
  2. PARACETAMOL [Suspect]
     Active Substance: ACETAMINOPHEN
     Indication: INFLUENZA
     Dosage: UNK
     Route: 065
  3. DOMPERIDONE [Interacting]
     Active Substance: DOMPERIDONE
     Indication: INFLUENZA
     Dosage: UNK
     Route: 065
  4. METOCLOPRAMIDE. [Interacting]
     Active Substance: METOCLOPRAMIDE
     Indication: INFLUENZA
     Dosage: UNK
     Route: 065
  5. DESAMETASONE [Interacting]
     Active Substance: DEXAMETHASONE
     Indication: INFLUENZA
     Dosage: UNK
     Route: 065
  6. RISPERDAL [Interacting]
     Active Substance: RISPERIDONE
     Indication: PRODUCT USED FOR UNKNOWN INDICATION
     Dosage: 0.5 MG, DAILY
     Route: 048
     Dates: start: 20140928, end: 20150110
  7. BUTAMIRATE CITRATE [Interacting]
     Active Substance: BUTAMIRATE CITRATE
     Indication: INFLUENZA
     Dosage: UNK
     Route: 065

REACTIONS (1)
  - Bradycardia [Recovered/Resolved]

NARRATIVE: CASE EVENT DATE: 20150118
